FAERS Safety Report 24941765 (Version 1)
Quarter: 2025Q1

REPORT INFORMATION
  Report Type: Spontaneous
  Country: US (occurrence: None)
  Receive Date: 20250207
  Receipt Date: 20250207
  Transmission Date: 20250408
  Serious: Yes (Hospitalization)
  Sender: FDA-CTU
  Company Number: None

PATIENT
  Age: 60 Year
  Sex: Male
  Weight: 104.7 kg

DRUGS (1)
  1. PONATINIB HYDROCHLORIDE [Suspect]
     Active Substance: PONATINIB HYDROCHLORIDE

REACTIONS (9)
  - Tachycardia [None]
  - Pyrexia [None]
  - Myocardial infarction [None]
  - Urinary tract infection [None]
  - Cough [None]
  - Coronary artery occlusion [None]
  - Coronary artery stenosis [None]
  - Coronary artery occlusion [None]
  - Cardiac valve disease [None]

NARRATIVE: CASE EVENT DATE: 20250121
